FAERS Safety Report 17253113 (Version 1)
Quarter: 2020Q1

REPORT INFORMATION
  Report Type: Report from Study
  Country: CA (occurrence: CA)
  Receive Date: 20200109
  Receipt Date: 20200109
  Transmission Date: 20200409
  Serious: Yes (Death, Other)
  Sender: FDA-Public Use
  Company Number: CA-MYLANLABS-2019M1102484

PATIENT
  Age: 65 Year
  Sex: Female
  Weight: 69.3 kg

DRUGS (23)
  1. CLOZAPINE. [Suspect]
     Active Substance: CLOZAPINE
     Dosage: 50 MILLIGRAM, PM
     Dates: start: 20181119
  2. CITALOPRAM [Concomitant]
     Active Substance: CITALOPRAM HYDROBROMIDE
     Dosage: 10 MILLIGRAM, QD
     Dates: start: 20181119
  3. CLONAZEPAM. [Concomitant]
     Active Substance: CLONAZEPAM
     Dosage: 0.25 MILLIGRAM, TID
     Dates: start: 20190923
  4. CLOZAPINE. [Suspect]
     Active Substance: CLOZAPINE
     Dosage: 100 MILLIGRAM, PM
     Dates: start: 20181119
  5. POLYETHYLENE GLYCOL [Concomitant]
     Active Substance: POLYETHYLENE GLYCOLS
     Dosage: 1 DOSING CUP (17 G) WITH 250 ML LIQUID
     Dates: start: 20190729
  6. CLOZAPINE. [Suspect]
     Active Substance: CLOZAPINE
     Indication: PRODUCT USED FOR UNKNOWN INDICATION
     Dosage: UNK
     Dates: start: 200212
  7. GRAVOL [Concomitant]
     Active Substance: DIMENHYDRINATE
     Dosage: 7.5 MILLIGRAM, PM, 1/2 TABLET
     Dates: start: 20181119
  8. ESOMEPRAZOLE. [Concomitant]
     Active Substance: ESOMEPRAZOLE MAGNESIUM
     Dosage: 40 MILLIGRAM, QD
     Dates: start: 20181119
  9. LEVOTHYROXINE. [Concomitant]
     Active Substance: LEVOTHYROXINE
     Dosage: 112 MICROGRAM, QD
     Dates: start: 20190103
  10. MOMETASONE [Concomitant]
     Active Substance: MOMETASONE
     Dosage: 50 MICROGRAM, 2 SPRAY DAILY AT BED TIME
     Dates: start: 20181119
  11. OLANZAPINE. [Concomitant]
     Active Substance: OLANZAPINE
     Dosage: 10 MILLIGRAM, PM
     Dates: start: 20181210
  12. MOTILIUM [Concomitant]
     Active Substance: DOMPERIDONE
     Dosage: 10 MILLIGRAM, TID
     Dates: start: 20181119
  13. ACETAMINOPHEN. [Concomitant]
     Active Substance: ACETAMINOPHEN
     Dosage: 500 MILLIGRAM, TID
     Dates: start: 20181119
  14. ZOPICLONE [Concomitant]
     Active Substance: ZOPICLONE
     Dosage: 7.5 MILLIGRAM, PM
     Dates: start: 20190912
  15. SECARIS [Concomitant]
     Active Substance: PROPYLENE GLYCOL
     Dosage: AS NEEDED
     Dates: start: 20181119
  16. NEURONTIN [Concomitant]
     Active Substance: GABAPENTIN
     Dosage: 400 MILLIGRAM, TID
     Dates: start: 20190912
  17. CLOZAPINE. [Suspect]
     Active Substance: CLOZAPINE
     Dosage: UNK
     Dates: start: 201606
  18. CLOZAPINE. [Suspect]
     Active Substance: CLOZAPINE
     Dosage: 200 MILLIGRAM, BID
     Dates: start: 20181119
  19. METHOTRIMEPRAZINE                  /00038601/ [Concomitant]
     Active Substance: LEVOMEPROMAZINE
     Dosage: 25 MILLIGRAM, TID
  20. BENADRYL [Concomitant]
     Active Substance: DIPHENHYDRAMINE HYDROCHLORIDE
     Dosage: 25 MILLIGRAM, 1-2 TABLET EVERY 6 HOURS
     Dates: start: 20181119
  21. LACTULOSE. [Concomitant]
     Active Substance: LACTULOSE
     Dosage: 40 ML, AS NEEDED
     Dates: start: 20181119
  22. BENZTROPINE                        /00012901/ [Concomitant]
     Active Substance: BENZTROPINE
     Dosage: 1 MILLIGRAM, BID
     Dates: start: 20181119
  23. SALINEX                            /00075401/ [Concomitant]
     Active Substance: SODIUM CHLORIDE
     Dosage: UNK
     Dates: start: 20181119

REACTIONS (5)
  - Pneumonia aspiration [Fatal]
  - Dyspnoea [Unknown]
  - Aspiration [Unknown]
  - Depressed level of consciousness [Unknown]
  - Lethargy [Unknown]

NARRATIVE: CASE EVENT DATE: 2017
